FAERS Safety Report 9251503 (Version 1)
Quarter: 2013Q1

REPORT INFORMATION
  Report Type: Spontaneous
  Country: US (occurrence: None)
  Receive Date: 20130305
  Receipt Date: 20130305
  Transmission Date: 20140127
  Serious: Yes (Other)
  Sender: FDA-Public Use
  Company Number: 163-21880-12082053

PATIENT
  Age: 69 Year
  Sex: Female

DRUGS (5)
  1. REVLIMID [Suspect]
     Indication: PLASMA CELL MYELOMA
     Route: 048
     Dates: start: 201205
  2. OMEPRAZOLE (OMEPRAZOLE) [Concomitant]
  3. ACYCLOVIR (ACICLOVIR) (ACICLOVIR) [Concomitant]
  4. BACTRIM (BACTRIM) [Concomitant]
  5. DEXAMETHASONE (DEXAMETHASONE) [Concomitant]

REACTIONS (5)
  - Joint swelling [None]
  - Neutropenia [None]
  - Muscle spasms [None]
  - White blood cell count decreased [None]
  - Abdominal pain upper [None]
